FAERS Safety Report 8555532-1 (Version None)
Quarter: 2012Q3

REPORT INFORMATION
  Report Type: 
  Country: None (occurrence: None)
  Receive Date: 20120731
  Receipt Date: 20111205
  Transmission Date: 20120928
  Serious: No
  Sender: FDA-Public Use
  Company Number: US-ASTRAZENECA-2011SE00330

PATIENT
  Age: 51 Year
  Sex: Female
  Weight: 88 kg

DRUGS (4)
  1. SEROQUEL [Suspect]
     Route: 048
     Dates: start: 20050101
  2. SEROQUEL [Suspect]
     Dosage: 25 MG IN MORNING AND 50 MG AT NIGHT
     Route: 048
     Dates: start: 20050101
  3. SEROQUEL [Suspect]
     Indication: MENIERE'S DISEASE
     Route: 048
     Dates: start: 20050101
  4. SEROQUEL [Suspect]
     Route: 048
     Dates: start: 20050101

REACTIONS (4)
  - THERAPEUTIC RESPONSE UNEXPECTED [None]
  - DRUG DOSE OMISSION [None]
  - EXOSTOSIS [None]
  - ACTIVITIES OF DAILY LIVING IMPAIRED [None]
